FAERS Safety Report 12644424 (Version 1)
Quarter: 2016Q3

REPORT INFORMATION
  Report Type: Report from Study
  Country: NL (occurrence: NL)
  Receive Date: 20160811
  Receipt Date: 20160811
  Transmission Date: 20161109
  Serious: Yes (Death, Hospitalization)
  Sender: FDA-Public Use
  Company Number: NL-ABBVIE-16P-114-1695501-00

PATIENT
  Age: 54 Year
  Sex: Female

DRUGS (3)
  1. DUODOPA [Suspect]
     Active Substance: CARBIDOPA\LEVODOPA
     Dosage: MORNING DOSE: 6.5; CONTINUOUS DOSE: 3.9; EXTRA DOSE: 2.0
     Route: 050
     Dates: start: 2016
  2. DUODOPA [Suspect]
     Active Substance: CARBIDOPA\LEVODOPA
     Indication: PARKINSON^S DISEASE
     Dosage: MORNING DOSE: 7.0; CONTINUOUS DOSE: 3.9; EXTRA DOSE: 2.0
     Route: 050
     Dates: start: 20160613
  3. PRADAXA [Concomitant]
     Active Substance: DABIGATRAN ETEXILATE MESYLATE
     Indication: PRODUCT USED FOR UNKNOWN INDICATION

REACTIONS (16)
  - Death [Fatal]
  - Posture abnormal [Not Recovered/Not Resolved]
  - Dyskinesia [Not Recovered/Not Resolved]
  - Clostridial infection [Not Recovered/Not Resolved]
  - Fatigue [Not Recovered/Not Resolved]
  - Mental impairment [Not Recovered/Not Resolved]
  - Syncope [Recovered/Resolved]
  - Fall [Recovered/Resolved]
  - Hallucination [Recovered/Resolved]
  - Thrombosis [Unknown]
  - Weight decreased [Not Recovered/Not Resolved]
  - Musculoskeletal stiffness [Unknown]
  - Muscle spasms [Not Recovered/Not Resolved]
  - Infection [Unknown]
  - Pain in extremity [Unknown]
  - Oedema [Not Recovered/Not Resolved]

NARRATIVE: CASE EVENT DATE: 2016
